FAERS Safety Report 8965618 (Version 2)
Quarter: 2013Q1

REPORT INFORMATION
  Report Type: Spontaneous
  Country: IT (occurrence: None)
  Receive Date: 20121205
  Receipt Date: 20130117
  Transmission Date: 20140127
  Serious: Yes (Life-Threatening)
  Sender: FDA-Public Use
  Company Number: DSA_61221_2012

PATIENT
  Age: 81 Year
  Sex: Female

DRUGS (6)
  1. ELONTRIL [Suspect]
     Indication: MAJOR DEPRESSION
     Dosage: (300 MG, DAILY ORAL)?(01/01/2009 TO 11/07/2012)
     Route: 048
     Dates: start: 20090101, end: 20121107
  2. EFFEXOR [Suspect]
     Indication: MAJOR DEPRESSION
     Dosage: (75 MG, DAILY ORAL)?(01/01/2006  TO 11/07/2012)
     Route: 048
     Dates: start: 20090101, end: 20121107
  3. LAROXYL [Suspect]
     Indication: MAJOR DEPRESSION
     Dosage: (25 MG, DAILY ORAL)?(01/01/2009 TO 11/07/2012)
     Route: 048
     Dates: start: 20120101, end: 20121107
  4. CLONAZEPAM [Concomitant]
  5. ROSUVASTATIN [Concomitant]
  6. DL-ALPHA TOCOPHEROL [Concomitant]

REACTIONS (3)
  - Torsade de pointes [None]
  - Electrocardiogram QT prolonged [None]
  - Iatrogenic injury [None]
